FAERS Safety Report 4771950-1 (Version None)
Quarter: 2005Q3

REPORT INFORMATION
  Report Type: 
  Country: None (occurrence: None)
  Receive Date: 20050916
  Receipt Date: 20050906
  Transmission Date: 20060218
  Serious: Yes (Life-Threatening, Hospitalization)
  Sender: FDA-Public Use
  Company Number: 2005UW13219

PATIENT
  Age: 65 Year
  Sex: Female

DRUGS (6)
  1. CRESTOR [Suspect]
     Route: 048
     Dates: start: 20050808, end: 20050801
  2. PRAVACHOL [Concomitant]
     Dates: end: 20050801
  3. GLUCOPHAGE [Concomitant]
     Dates: end: 20050801
  4. LISINOPRIL [Concomitant]
     Dates: end: 20050801
  5. ASPIRIN [Concomitant]
     Dates: end: 20050801
  6. PROTON PUMP INHIBITOR [Concomitant]
     Dates: end: 20050801

REACTIONS (6)
  - BLOOD POTASSIUM INCREASED [None]
  - DIALYSIS [None]
  - GASTROENTERITIS VIRAL [None]
  - MULTI-ORGAN FAILURE [None]
  - RENAL FAILURE ACUTE [None]
  - RHABDOMYOLYSIS [None]
